FAERS Safety Report 22376824 (Version 2)
Quarter: 2023Q2

REPORT INFORMATION
  Report Type: Report from Study
  Country: US (occurrence: US)
  Receive Date: 20230529
  Receipt Date: 20230530
  Transmission Date: 20230721
  Serious: No
  Sender: FDA-Public Use
  Company Number: US-002147023-NVSC2023US120452

PATIENT
  Sex: Female

DRUGS (10)
  1. TRIAMCINOLONE ACETONIDE [Suspect]
     Active Substance: TRIAMCINOLONE ACETONIDE
     Indication: Psoriasis
     Dosage: UNK
     Route: 065
  2. DORZOLAMIDE [Suspect]
     Active Substance: DORZOLAMIDE
     Indication: Psoriasis
     Dosage: UNK
     Route: 065
  3. AMIODARONE [Suspect]
     Active Substance: AMIODARONE
     Indication: Psoriasis
     Dosage: UNK
     Route: 065
  4. ATORVASTATIN [Suspect]
     Active Substance: ATORVASTATIN
     Indication: Psoriasis
     Dosage: UNK
     Route: 065
  5. LOSARTAN [Suspect]
     Active Substance: LOSARTAN
     Indication: Psoriasis
     Dosage: UNK
     Route: 065
  6. METFORMIN [Suspect]
     Active Substance: METFORMIN HYDROCHLORIDE
     Indication: Psoriasis
     Dosage: UNK
     Route: 065
  7. HYDROCORTISONE [Suspect]
     Active Substance: HYDROCORTISONE
     Indication: Psoriasis
     Dosage: UNK
     Route: 065
  8. LOTEPREDNOL [Suspect]
     Active Substance: LOTEPREDNOL
     Indication: Psoriasis
     Dosage: UNK
     Route: 065
  9. LEVOTHYROXINE [Suspect]
     Active Substance: LEVOTHYROXINE
     Indication: Psoriasis
     Dosage: UNK
     Route: 065
  10. TRAMADOL [Suspect]
     Active Substance: TRAMADOL
     Indication: Psoriasis
     Dosage: UNK
     Route: 065

REACTIONS (4)
  - Skin plaque [Unknown]
  - Rash [Unknown]
  - Product use in unapproved indication [Unknown]
  - Drug ineffective [Unknown]
